FAERS Safety Report 25175517 (Version 2)
Quarter: 2025Q2

REPORT INFORMATION
  Report Type: Spontaneous
  Country: CA (occurrence: CA)
  Receive Date: 20250408
  Receipt Date: 20250424
  Transmission Date: 20250716
  Serious: Yes (Life-Threatening)
  Sender: BOEHRINGER INGELHEIM
  Company Number: CA-Komodo Health-a23aa000006lmIfAAI

PATIENT
  Sex: Male

DRUGS (2)
  1. MICARDIS [Suspect]
     Active Substance: TELMISARTAN
     Indication: Product used for unknown indication
     Dates: start: 201909
  2. MICARDIS [Suspect]
     Active Substance: TELMISARTAN
     Dosage: DOSE INCREASED TO 40 MG X 2 TABLETS
     Dates: start: 20250205, end: 20250323

REACTIONS (2)
  - Hypertension [Recovered/Resolved]
  - Erythema [Unknown]

NARRATIVE: CASE EVENT DATE: 20250205
